FAERS Safety Report 20932957 (Version 1)
Quarter: 2022Q2

REPORT INFORMATION
  Report Type: Spontaneous
  Country: US (occurrence: US)
  Receive Date: 20220608
  Receipt Date: 20220608
  Transmission Date: 20220721
  Serious: Yes (Death, Hospitalization)
  Sender: FDA-Public Use
  Company Number: US-MYLANLABS-2022M1043188

PATIENT
  Age: 62 Year
  Sex: Female

DRUGS (5)
  1. EPINEPHRINE [Suspect]
     Active Substance: EPINEPHRINE
     Indication: Cardiac arrest
     Dosage: UNK
  2. METHYLPREDNISOLONE [Suspect]
     Active Substance: METHYLPREDNISOLONE
     Indication: Cardiac arrest
     Dosage: 60 MILLIGRAM, Q8H,THE PATIENT RECEIVED IV METHYLPREDNISOLONE 60MG BOLUS EVERY 8HOURS
     Route: 042
  3. PHENYLEPHRINE [Suspect]
     Active Substance: PHENYLEPHRINE HYDROCHLORIDE
     Indication: Cardiac arrest
     Dosage: UNK
  4. VASOPRESSIN [Suspect]
     Active Substance: VASOPRESSIN
     Indication: Cardiac arrest
     Dosage: UNK
  5. ANAGRELIDE [Concomitant]
     Active Substance: ANAGRELIDE
     Indication: Thrombocytosis
     Dosage: UNK

REACTIONS (1)
  - Drug ineffective [Fatal]
